FAERS Safety Report 4583976-1 (Version None)
Quarter: 2005Q1

REPORT INFORMATION
  Report Type: 
  Country: None (occurrence: None)
  Receive Date: 20050125
  Receipt Date: 20041013
  Transmission Date: 20050727
  Serious: No
  Sender: FDA-Public Use
  Company Number: USA041080951

PATIENT
  Age: 75 Year
  Sex: Female
  Weight: 54 kg

DRUGS (3)
  1. FORTEO [Suspect]
     Indication: OSTEOPOROSIS
     Dosage: 20 UG/1 DAY
     Dates: start: 20041001
  2. ATENOLOL [Concomitant]
  3. SYNTHROID [Concomitant]

REACTIONS (4)
  - FEELING HOT [None]
  - HOT FLUSH [None]
  - MIDDLE INSOMNIA [None]
  - PAIN IN EXTREMITY [None]
